FAERS Safety Report 13058034 (Version 6)
Quarter: 2017Q1

REPORT INFORMATION
  Report Type: Report from Study
  Country: JP (occurrence: JP)
  Receive Date: 20161223
  Receipt Date: 20170320
  Transmission Date: 20170428
  Serious: Yes (Hospitalization, Other)
  Sender: FDA-Public Use
  Company Number: PHJP2015JP021915

PATIENT
  Age: 76 Year
  Sex: Female

DRUGS (30)
  1. FARYDAK [Suspect]
     Active Substance: PANOBINOSTAT
     Dosage: 10 MG, QD
     Route: 048
     Dates: start: 20151215, end: 20160104
  2. LENADEX [Suspect]
     Active Substance: DEXAMETHASONE ACETATE
     Indication: PLASMA CELL MYELOMA
     Dosage: 20 MG, UNK
     Route: 048
  3. LENADEX [Suspect]
     Active Substance: DEXAMETHASONE ACETATE
     Dosage: UNK
     Route: 048
     Dates: start: 20160128, end: 20160217
  4. LENADEX [Suspect]
     Active Substance: DEXAMETHASONE ACETATE
     Dosage: UNK
     Route: 048
     Dates: start: 20160314, end: 20160321
  5. BARACLUDE [Concomitant]
     Active Substance: ENTECAVIR
     Indication: CHRONIC HEPATITIS B
     Dosage: 0.5 MG, UNK
     Route: 048
  6. FARYDAK [Suspect]
     Active Substance: PANOBINOSTAT
     Dosage: 10 MG, QD
     Route: 048
     Dates: start: 20160128, end: 20160217
  7. VELCADE [Suspect]
     Active Substance: BORTEZOMIB
     Dosage: 1.0 MG/M2, QW2
     Route: 058
     Dates: start: 20151117, end: 20151207
  8. LENADEX [Suspect]
     Active Substance: DEXAMETHASONE ACETATE
     Dosage: UNK
     Route: 048
     Dates: start: 20160609, end: 20160629
  9. LYRICA [Concomitant]
     Active Substance: PREGABALIN
     Indication: NEUROPATHY PERIPHERAL
     Dosage: 100 MG, UNK
     Route: 048
  10. METHYCOBAL [Concomitant]
     Active Substance: METHYLCOBALAMIN
     Indication: NEUROPATHY PERIPHERAL
     Dosage: 1500 UG, UNK
     Route: 048
  11. FARYDAK [Suspect]
     Active Substance: PANOBINOSTAT
     Dosage: 10 MG, QD
     Route: 048
     Dates: start: 20160218, end: 20160309
  12. FARYDAK [Suspect]
     Active Substance: PANOBINOSTAT
     Dosage: 15 MG, QD
     Route: 048
     Dates: start: 20160314, end: 20160321
  13. LENADEX [Suspect]
     Active Substance: DEXAMETHASONE ACETATE
     Dosage: UNK
     Route: 048
     Dates: start: 20151215, end: 20160104
  14. FARYDAK [Suspect]
     Active Substance: PANOBINOSTAT
     Indication: PLASMA CELL MYELOMA
     Dosage: 20 MG, QD
     Route: 048
     Dates: start: 20151117, end: 20151207
  15. FARYDAK [Suspect]
     Active Substance: PANOBINOSTAT
     Dosage: 15 MG, QD
     Route: 048
     Dates: start: 20160609, end: 20160629
  16. VELCADE [Suspect]
     Active Substance: BORTEZOMIB
     Dosage: 1.0 MG/M2, QW2
     Route: 058
     Dates: start: 20160609, end: 20160629
  17. LENADEX [Suspect]
     Active Substance: DEXAMETHASONE ACETATE
     Dosage: UNK
     Route: 048
     Dates: start: 20151117, end: 20151207
  18. LENADEX [Suspect]
     Active Substance: DEXAMETHASONE ACETATE
     Dosage: UNK
     Route: 048
     Dates: start: 20160218, end: 20160309
  19. NIFEDIPINE. [Concomitant]
     Active Substance: NIFEDIPINE
     Indication: HYPERTENSION
     Dosage: 20 MG, UNK
     Route: 048
  20. VELCADE [Suspect]
     Active Substance: BORTEZOMIB
     Dosage: 1.0 MG/M2, QW2
     Route: 058
     Dates: start: 20160128, end: 20160217
  21. TAKEPRON [Concomitant]
     Active Substance: LANSOPRAZOLE
     Indication: GASTROOESOPHAGEAL REFLUX DISEASE
     Dosage: 15 MG, UNK
     Route: 048
  22. ZOMETA [Concomitant]
     Active Substance: ZOLEDRONIC ACID
     Indication: PLASMA CELL MYELOMA
     Dosage: 4 MG, UNK
     Route: 065
  23. VELCADE [Suspect]
     Active Substance: BORTEZOMIB
     Indication: PLASMA CELL MYELOMA
     Dosage: 0.9 MG/M2, UNK
     Route: 058
  24. VELCADE [Suspect]
     Active Substance: BORTEZOMIB
     Dosage: 1.0 MG/M2, QW2
     Route: 058
     Dates: start: 20151215, end: 20160104
  25. LASIX [Concomitant]
     Active Substance: FUROSEMIDE
     Indication: CARDIAC FAILURE
     Dosage: 20 MG, UNK
     Route: 048
  26. VELCADE [Suspect]
     Active Substance: BORTEZOMIB
     Dosage: 1.0 MG/M2, QW2
     Route: 058
     Dates: start: 20160218, end: 20160309
  27. VELCADE [Suspect]
     Active Substance: BORTEZOMIB
     Dosage: 1.0 MG/M2, QW2
     Route: 058
     Dates: start: 20160314, end: 20160321
  28. VELCADE [Suspect]
     Active Substance: BORTEZOMIB
     Dosage: UNK
     Route: 058
  29. ACICLOVIN [Concomitant]
     Active Substance: ACYCLOVIR
     Indication: PROPHYLAXIS
     Dosage: 200 MG, UNK
     Route: 048
  30. BAKTAR [Concomitant]
     Active Substance: SULFAMETHOXAZOLE\TRIMETHOPRIM
     Indication: PROPHYLAXIS
     Dosage: 1 DF, UNK
     Route: 048

REACTIONS (34)
  - Loss of consciousness [Recovered/Resolved]
  - Neuropathy peripheral [Not Recovered/Not Resolved]
  - Nausea [Recovering/Resolving]
  - Malaise [Unknown]
  - Neutrophil count decreased [Recovering/Resolving]
  - Febrile neutropenia [Recovered/Resolved]
  - Plasma cell myeloma [Unknown]
  - Decreased appetite [Unknown]
  - Cerebral infarction [Recovering/Resolving]
  - White blood cell count decreased [Recovered/Resolved]
  - White blood cell count decreased [Recovered/Resolved]
  - Hypokalaemia [Recovered/Resolved]
  - Renal impairment [Recovered/Resolved]
  - Renal impairment [Recovered/Resolved]
  - Presyncope [Recovered/Resolved]
  - Renal impairment [Recovered/Resolved]
  - Bradycardia [Recovered/Resolved]
  - Speech disorder [Recovered/Resolved]
  - Blood magnesium increased [Unknown]
  - Movement disorder [Recovered/Resolved]
  - Hypokalaemia [Recovered/Resolved]
  - Hypokalaemia [Recovering/Resolving]
  - Renal impairment [Recovered/Resolved]
  - Dehydration [Recovering/Resolving]
  - Neutrophil count decreased [Recovered/Resolved]
  - Pyrexia [Unknown]
  - Diarrhoea [Recovering/Resolving]
  - Anaemia [Recovering/Resolving]
  - Malignant neoplasm progression [Unknown]
  - Orthostatic hypotension [Unknown]
  - Mental impairment [Recovered/Resolved]
  - Platelet count decreased [Recovering/Resolving]
  - Haemoglobin decreased [Unknown]
  - Hypophosphataemia [Recovered/Resolved]

NARRATIVE: CASE EVENT DATE: 20151118
